FAERS Safety Report 11296100 (Version 1)
Quarter: 2015Q3

REPORT INFORMATION
  Report Type: Spontaneous
  Country: US (occurrence: None)
  Receive Date: 20150722
  Receipt Date: 20150722
  Transmission Date: 20151125
  Serious: Yes (Hospitalization)
  Sender: FDA-Public Use
  Company Number: None

PATIENT
  Age: 56 Year
  Sex: Male
  Weight: 82.1 kg

DRUGS (3)
  1. HYDREA [Concomitant]
     Active Substance: HYDROXYUREA
  2. TAXOL [Suspect]
     Active Substance: PACLITAXEL
     Dosage: EVERY OTHER MONDAY
     Route: 042
  3. 5FU [Suspect]
     Active Substance: FLUOROURACIL
     Route: 042

REACTIONS (1)
  - Mucosal inflammation [None]

NARRATIVE: CASE EVENT DATE: 20150627
